FAERS Safety Report 15114583 (Version 1)
Quarter: 2018Q2

REPORT INFORMATION
  Report Type: Spontaneous
  Country: US (occurrence: US)
  Receive Date: 20180612
  Receipt Date: 20180612
  Transmission Date: 20180711
  Serious: Yes (Hospitalization)
  Sender: FDA-Public Use
  Company Number: None

PATIENT
  Age: 57 Year
  Sex: Female
  Weight: 64.2 kg

DRUGS (1)
  1. HEPARIN [Suspect]
     Active Substance: HEPARIN SODIUM
     Route: 041
     Dates: start: 20180113, end: 20180117

REACTIONS (4)
  - Haemoglobin decreased [None]
  - Hypotension [None]
  - Refusal of treatment by patient [None]
  - Abdominal wall haematoma [None]

NARRATIVE: CASE EVENT DATE: 20180117
